FAERS Safety Report 8173779-3 (Version None)
Quarter: 2012Q1

REPORT INFORMATION
  Report Type: 
  Country: None (occurrence: None)
  Receive Date: 20120229
  Receipt Date: 20120214
  Transmission Date: 20120608
  Serious: Yes (Hospitalization, Other)
  Sender: FDA-Public Use
  Company Number: US-SPECTRUM PHARMACEUTICALS, INC.-11-Z-US-00358

PATIENT

DRUGS (22)
  1. ZEVALIN [Suspect]
     Indication: B-CELL LYMPHOMA
     Dosage: 32 MCI, SINGLE
     Route: 042
     Dates: start: 20110317, end: 20110317
  2. RITUXIMAB [Suspect]
     Dosage: 480 MG, SINGLE
     Route: 042
     Dates: start: 20110309, end: 20110309
  3. BENDAMUSTINE [Suspect]
     Dosage: 168 TO 175 MG, UNK
     Route: 042
     Dates: start: 20101223, end: 20101223
  4. BENDAMUSTINE [Suspect]
     Dosage: 168 TO 175 MG, UNK
     Route: 042
     Dates: start: 20101123, end: 20101123
  5. RITUXIMAB [Suspect]
     Dosage: UNK
     Route: 042
     Dates: start: 20101223, end: 20101223
  6. BENDAMUSTINE [Suspect]
     Dosage: 168 TO 175 MG, UNK
     Route: 042
     Dates: start: 20101021, end: 20101021
  7. COLACE [Concomitant]
     Indication: PRODUCT USED FOR UNKNOWN INDICATION
     Dosage: 100 MG, BID
     Route: 048
  8. GLUCOPHAGE [Concomitant]
     Indication: PRODUCT USED FOR UNKNOWN INDICATION
     Dosage: 500 MG:  1000 MG, BID (WITH MEALS)
     Route: 048
  9. ZEVALIN [Suspect]
     Dosage: 6.1 MCI, SINGLE
     Route: 042
     Dates: start: 20110309, end: 20110309
  10. RITUXIMAB [Suspect]
     Dosage: UNK
     Route: 042
     Dates: start: 20110120, end: 20110120
  11. RITUXIMAB [Suspect]
     Dosage: UNK
     Route: 042
     Dates: start: 20101123, end: 20101123
  12. BENDAMUSTINE [Suspect]
     Indication: B-CELL LYMPHOMA
     Dosage: 168 TO 175 MG, UNK
     Route: 042
     Dates: start: 20110120, end: 20110120
  13. METAGLIP [Concomitant]
     Indication: PRODUCT USED FOR UNKNOWN INDICATION
     Dosage: 5/500 MG; 2 TABLETS, QAM
     Route: 048
  14. RITUXIMAB [Suspect]
     Indication: B-CELL LYMPHOMA
     Dosage: 480 MG, SINGLE
     Route: 042
     Dates: start: 20110317, end: 20110317
  15. RITUXIMAB [Suspect]
     Dosage: UNK
     Route: 042
     Dates: start: 20101021, end: 20101021
  16. MOBIC [Concomitant]
     Indication: PRODUCT USED FOR UNKNOWN INDICATION
     Dosage: 7.5 MG; 15 MG, QD
     Route: 048
  17. VICODIN [Concomitant]
     Indication: PRODUCT USED FOR UNKNOWN INDICATION
     Dosage: 5/500 MG:  1 TABLET, EVERY 4 HOURS, PRN
     Route: 048
  18. NOVOLOG [Concomitant]
     Indication: PRODUCT USED FOR UNKNOWN INDICATION
     Dosage: INJECT, TID (WITH MEALS).  SLIDING SCALE.
     Route: 058
  19. ZOLOFT [Concomitant]
     Indication: PRODUCT USED FOR UNKNOWN INDICATION
     Dosage: 50 MG, QD
     Route: 048
  20. JANUVIA [Concomitant]
     Indication: TYPE 2 DIABETES MELLITUS
     Dosage: 100 MG, QD
     Route: 048
  21. ARICEPT [Concomitant]
     Indication: PRODUCT USED FOR UNKNOWN INDICATION
     Dosage: 5 MG, NIGHTLY
     Route: 048
  22. GLUCOTROL [Concomitant]
     Indication: PRODUCT USED FOR UNKNOWN INDICATION
     Dosage: 5 MG:  10 MG, BID (BEFORE MEALS)
     Route: 048

REACTIONS (16)
  - MENTAL STATUS CHANGES [None]
  - ANAEMIA [None]
  - RASH ERYTHEMATOUS [None]
  - LEUKAEMOID REACTION [None]
  - HERPES ZOSTER [None]
  - CHRONIC MYELOID LEUKAEMIA [None]
  - ANAEMIA MACROCYTIC [None]
  - SUPERINFECTION VIRAL [None]
  - CHEST PAIN [None]
  - BLOOD LACTATE DEHYDROGENASE INCREASED [None]
  - LEUKOCYTOSIS [None]
  - PLATELET COUNT DECREASED [None]
  - POST HERPETIC NEURALGIA [None]
  - BLOOD GLUCOSE INCREASED [None]
  - GLYCOSYLATED HAEMOGLOBIN INCREASED [None]
  - HYPOKALAEMIA [None]
